FAERS Safety Report 9835216 (Version 1)
Quarter: 2014Q1

REPORT INFORMATION
  Report Type: Spontaneous
  Country: US (occurrence: US)
  Receive Date: 20140122
  Receipt Date: 20140122
  Transmission Date: 20141002
  Serious: No
  Sender: FDA-Public Use
  Company Number: US-BRISTOL-MYERS SQUIBB COMPANY-19865195

PATIENT
  Age: 80 Year
  Sex: Male
  Weight: 99.77 kg

DRUGS (12)
  1. ELIQUIS [Suspect]
     Indication: ATRIAL FIBRILLATION
  2. WARFARIN SODIUM [Suspect]
  3. CLOPIDOGREL BISULFATE [Suspect]
  4. CODEINE [Concomitant]
  5. LISINOPRIL [Concomitant]
  6. TAMSULOSIN [Concomitant]
  7. ASPIRIN [Concomitant]
  8. COLCHICINE [Concomitant]
  9. GABAPENTIN [Concomitant]
  10. MAGNESIUM [Concomitant]
  11. METFORMIN [Concomitant]
  12. METOPROLOL [Concomitant]

REACTIONS (2)
  - Insomnia [Unknown]
  - Restless legs syndrome [Unknown]
